FAERS Safety Report 10101731 (Version 3)
Quarter: 2014Q3

REPORT INFORMATION
  Report Type: Spontaneous
  Country: US (occurrence: US)
  Receive Date: 20140424
  Receipt Date: 20140709
  Transmission Date: 20150326
  Serious: Yes (Death, Disabling, Other)
  Sender: FDA-Public Use
  Company Number: US-009507513-1404USA012634

PATIENT
  Sex: Male
  Weight: 95.69 kg

DRUGS (3)
  1. JANUMET [Suspect]
     Active Substance: METFORMIN HYDROCHLORIDE\SITAGLIPTIN PHOSPHATE
     Indication: TYPE 2 DIABETES MELLITUS
     Dosage: 50-1000 MG, BID
     Route: 048
     Dates: start: 20071213, end: 20080317
  2. JANUMET [Suspect]
     Active Substance: METFORMIN HYDROCHLORIDE\SITAGLIPTIN PHOSPHATE
     Dosage: 50-1000 MG, UNK
     Route: 048
     Dates: start: 20080926, end: 20120724
  3. JANUMET [Suspect]
     Active Substance: METFORMIN HYDROCHLORIDE\SITAGLIPTIN PHOSPHATE
     Dosage: 50-500 MG, UNK
     Route: 048
     Dates: start: 20080420, end: 20080827

REACTIONS (12)
  - Iron deficiency anaemia [Unknown]
  - Pancreatic carcinoma [Fatal]
  - Bile duct stent insertion [Unknown]
  - Abdominal lymphadenopathy [Unknown]
  - Impaired gastric emptying [Unknown]
  - Anaemia [Unknown]
  - Gastrooesophageal reflux disease [Unknown]
  - Peripheral vascular disorder [Unknown]
  - Metastases to liver [Unknown]
  - Retroperitoneal lymphadenopathy [Unknown]
  - Oesophagitis [Not Recovered/Not Resolved]
  - Hypertension [Unknown]

NARRATIVE: CASE EVENT DATE: 20110104
